FAERS Safety Report 15014601 (Version 1)
Quarter: 2018Q2

REPORT INFORMATION
  Report Type: Spontaneous
  Country: DE (occurrence: DE)
  Receive Date: 20180615
  Receipt Date: 20180615
  Transmission Date: 20180711
  Serious: Yes (Hospitalization)
  Sender: FDA-Public Use
  Company Number: DE-TEVA-2018-DE-907476

PATIENT
  Age: 63 Year
  Sex: Male

DRUGS (7)
  1. ENOXAPARIN [Concomitant]
     Active Substance: ENOXAPARIN
     Dosage: 40 MG, 0-0-1-0
     Route: 058
  2. DOMINAL FORTE 40MG [Interacting]
     Active Substance: PROTHIPENDYL HYDROCHLORIDE
     Dosage: 40 MG, 0-0-1-0
     Route: 065
  3. ZOPICLONE [Concomitant]
     Active Substance: ZOPICLONE
     Dosage: 7.5 MG, 0-0-1-0
     Route: 065
  4. CIPROFLOXACIN. [Suspect]
     Active Substance: CIPROFLOXACIN
     Dosage: 500 MG, 1-0-1-0
     Route: 065
  5. QUETIAPINE. [Suspect]
     Active Substance: QUETIAPINE
     Dosage: 50 MG, 0-1-0-0
     Route: 065
  6. RISPERIDONE. [Interacting]
     Active Substance: RISPERIDONE
     Dosage: 0.5 MG, 1-0-0-0
     Route: 065
  7. XIPAMIDE [Concomitant]
     Active Substance: XIPAMIDE
     Dosage: 20 MG, 1-0-0-0
     Route: 065

REACTIONS (5)
  - General physical health deterioration [Unknown]
  - Drug prescribing error [Unknown]
  - Somnolence [Unknown]
  - Labelled drug-drug interaction medication error [Unknown]
  - Sedation [Unknown]
